FAERS Safety Report 14539849 (Version 3)
Quarter: 2018Q2

REPORT INFORMATION
  Report Type: Report from Study
  Country: DE (occurrence: DE)
  Receive Date: 20180216
  Receipt Date: 20180405
  Transmission Date: 20180711
  Serious: Yes (Other)
  Sender: FDA-Public Use
  Company Number: DE-BAYER-2018-029328

PATIENT
  Age: 88 Year
  Sex: Male

DRUGS (4)
  1. RIOCIGUAT. [Suspect]
     Active Substance: RIOCIGUAT
     Indication: PULMONARY HYPERTENSION
     Dosage: 1.5 MG, TID
     Dates: start: 20180208
  2. RIOCIGUAT. [Suspect]
     Active Substance: RIOCIGUAT
     Indication: PULMONARY HYPERTENSION
     Dosage: 1.0 MG, TID
     Dates: start: 20171221
  3. RIOCIGUAT. [Suspect]
     Active Substance: RIOCIGUAT
     Indication: PULMONARY HYPERTENSION
     Dosage: 1.5 MG, TID
  4. RIOCIGUAT. [Suspect]
     Active Substance: RIOCIGUAT
     Indication: PULMONARY HYPERTENSION
     Dosage: 2.0 MG, TID
     Dates: start: 20180104

REACTIONS (4)
  - Loss of consciousness [Recovered/Resolved]
  - Dizziness [None]
  - Headache [Recovered/Resolved]
  - Dizziness [Recovered/Resolved]

NARRATIVE: CASE EVENT DATE: 20180130
